FAERS Safety Report 13235356 (Version 2)
Quarter: 2017Q1

REPORT INFORMATION
  Report Type: Spontaneous
  Country: PL (occurrence: PL)
  Receive Date: 20170215
  Receipt Date: 20170227
  Transmission Date: 20170428
  Serious: Yes (Hospitalization, Disabling)
  Sender: FDA-Public Use
  Company Number: PL-PFIZER INC-2017059994

PATIENT
  Age: 57 Year
  Sex: Female
  Weight: 92 kg

DRUGS (1)
  1. SOLU-MEDROL [Suspect]
     Active Substance: METHYLPREDNISOLONE SODIUM SUCCINATE
     Indication: BRONCHOSPASM
     Route: 042
     Dates: start: 20170112

REACTIONS (4)
  - Headache [Recovered/Resolved with Sequelae]
  - Tinnitus [Recovered/Resolved with Sequelae]
  - Rhinitis [Recovered/Resolved with Sequelae]
  - Dizziness [Recovered/Resolved with Sequelae]

NARRATIVE: CASE EVENT DATE: 20170112
